FAERS Safety Report 16691362 (Version 1)
Quarter: 2019Q3

REPORT INFORMATION
  Report Type: Spontaneous
  Country: US (occurrence: US)
  Receive Date: 20190812
  Receipt Date: 20190812
  Transmission Date: 20191004
  Serious: No
  Sender: FDA-Public Use
  Company Number: US-GLAXOSMITHKLINE-US2019142919

PATIENT
  Age: 59 Year
  Sex: Female

DRUGS (1)
  1. EXCEDRIN MIGRAINE [Suspect]
     Active Substance: ACETAMINOPHEN\ASPIRIN\CAFFEINE
     Indication: HEADACHE
     Dosage: MORE THAN 2 CAPLETS PER DAY

REACTIONS (3)
  - Off label use [Unknown]
  - Extra dose administered [Unknown]
  - Product use in unapproved indication [Unknown]
